FAERS Safety Report 7657434-1 (Version None)
Quarter: 2011Q3

REPORT INFORMATION
  Report Type: 
  Country: None (occurrence: None)
  Receive Date: 20110804
  Receipt Date: 20110104
  Transmission Date: 20111222
  Serious: Yes (Disabling, Other)
  Sender: FDA-Public Use
  Company Number: PE-ASTRAZENECA-2011SE45129

PATIENT
  Age: 27 Year
  Sex: Female

DRUGS (5)
  1. SEROQUEL XR [Suspect]
     Route: 048
  2. SEROQUEL XR [Suspect]
     Indication: BIPOLAR DISORDER
     Route: 048
  3. SEROQUEL XR [Suspect]
     Route: 048
  4. TOPIRAMATE [Concomitant]
  5. AKINETON [Concomitant]

REACTIONS (3)
  - EPILEPSY [None]
  - MUSCULAR WEAKNESS [None]
  - PARALYSIS [None]
